FAERS Safety Report 6721661-8 (Version None)
Quarter: 2010Q2

REPORT INFORMATION
  Report Type: 
  Country: None (occurrence: None)
  Receive Date: 20100512
  Receipt Date: 20100510
  Transmission Date: 20101027
  Serious: Yes (Death)
  Sender: FDA-Public Use
  Company Number: PHHY2010US30074

PATIENT
  Sex: Male
  Weight: 70.748 kg

DRUGS (2)
  1. EXJADE [Suspect]
     Indication: LYMPHATIC DISORDER
     Dosage: 1500 MG DAILY
     Route: 048
     Dates: start: 20080527
  2. EXJADE [Suspect]
     Indication: BLOOD DISORDER

REACTIONS (1)
  - DEATH [None]
